FAERS Safety Report 6861885-2 (Version None)
Quarter: 2010Q3

REPORT INFORMATION
  Report Type: 
  Country: None (occurrence: None)
  Receive Date: 20100721
  Receipt Date: 20100706
  Transmission Date: 20110219
  Serious: Yes (Other)
  Sender: FDA-Public Use
  Company Number: KR-PAR PHARMACEUTICAL, INC-2010SCPR001924

PATIENT

DRUGS (1)
  1. METRONIDAZOLE [Suspect]
     Indication: ABDOMINAL ABSCESS
     Dosage: UNK
     Route: 065

REACTIONS (3)
  - CENTRAL NERVOUS SYSTEM LESION [None]
  - NUCLEAR MAGNETIC RESONANCE IMAGING BRAIN ABNORMAL [None]
  - TOXIC ENCEPHALOPATHY [None]
